FAERS Safety Report 25810608 (Version 2)
Quarter: 2025Q4

REPORT INFORMATION
  Report Type: Report from Study
  Country: US (occurrence: US)
  Receive Date: 20250917
  Receipt Date: 20251002
  Transmission Date: 20260117
  Serious: No
  Sender: BIOCODEX
  Company Number: US-BIOCODEX2-2025000293

PATIENT
  Age: 13 Year
  Sex: Male
  Weight: 66 kg

DRUGS (7)
  1. DIACOMIT [Suspect]
     Active Substance: STIRIPENTOL
     Indication: Severe myoclonic epilepsy of infancy
     Dosage: 500MG TWICE DAILY
     Route: 050
     Dates: start: 20240801
  2. DIACOMIT [Suspect]
     Active Substance: STIRIPENTOL
     Indication: Severe myoclonic epilepsy of infancy
     Dosage: 500MG TWICE DAILY
     Route: 050
     Dates: start: 20240801
  3. CLOBAZAM [Concomitant]
     Active Substance: CLOBAZAM
     Indication: Severe myoclonic epilepsy of infancy
     Dosage: 10MG, BID, VIA G-TUBE
     Route: 050
  4. EPIDIOLEX [Concomitant]
     Active Substance: CANNABIDIOL
     Indication: Product used for unknown indication
     Dosage: 6ML, BID, VIA G-TUBE
     Route: 050
  5. FINTEPLA [Concomitant]
     Active Substance: FENFLURAMINE
     Indication: Product used for unknown indication
     Dosage: 7ML, BID, VIA G-TUBE
     Route: 050
  6. PHENOBARBITAL [Concomitant]
     Active Substance: PHENOBARBITAL
     Indication: Product used for unknown indication
     Dosage: 12 ML, BID, VIA G-TUBE
     Route: 050
  7. VALPROIC ACID [Concomitant]
     Active Substance: VALPROIC ACID
     Indication: Product used for unknown indication
     Dosage: DOSE INCREASED TO 7 (UNIT NOT PROVIDED), TID, VIA G-TUBE
     Route: 050

REACTIONS (2)
  - Off label use [Unknown]
  - Product preparation issue [Unknown]

NARRATIVE: CASE EVENT DATE: 20240801
